FAERS Safety Report 7373588-9 (Version None)
Quarter: 2011Q1

REPORT INFORMATION
  Report Type: 
  Country: None (occurrence: None)
  Receive Date: 20110314
  Receipt Date: 20110304
  Transmission Date: 20110831
  Serious: Yes (Hospitalization)
  Sender: FDA-Public Use
  Company Number: TAJPN-11-0191

PATIENT
  Age: 52 Year
  Sex: Female

DRUGS (2)
  1. ABRAXANE [Suspect]
     Indication: BREAST CANCER RECURRENT
     Dosage: (254 MG)
     Dates: start: 20110218, end: 20110218
  2. LAXATIVE (LAXATIVE) [Concomitant]

REACTIONS (1)
  - ENTEROCOLITIS HAEMORRHAGIC [None]
